FAERS Safety Report 7893509-X (Version None)
Quarter: 2011Q4

REPORT INFORMATION
  Report Type: 
  Country: None (occurrence: None)
  Receive Date: 20111104
  Receipt Date: 20111027
  Transmission Date: 20120403
  Serious: Yes (Hospitalization, Other)
  Sender: FDA-Public Use
  Company Number: MW-ABBOTT-10P-100-0636519-00

PATIENT
  Sex: Female
  Weight: 61.4 kg

DRUGS (3)
  1. COTRIMAXAZOLE [Concomitant]
     Indication: PROPHYLAXIS
  2. LOPINAVIR/RITONAVIR [Suspect]
     Indication: PROPHYLAXIS AGAINST HIV INFECTION
     Dosage: 400/100 MG
     Route: 048
     Dates: start: 20100112, end: 20100302
  3. COMBIVIR [Concomitant]
     Indication: PROPHYLAXIS AGAINST HIV INFECTION
     Dosage: 300/150MG
     Route: 048
     Dates: start: 20100112, end: 20100302

REACTIONS (1)
  - ABORTION SPONTANEOUS [None]
